FAERS Safety Report 23878526 (Version 1)
Quarter: 2024Q2

REPORT INFORMATION
  Report Type: Spontaneous
  Country: FR (occurrence: FR)
  Receive Date: 20240521
  Receipt Date: 20240521
  Transmission Date: 20240716
  Serious: Yes (Life-Threatening)
  Sender: FDA-Public Use
  Company Number: None

PATIENT
  Age: 33 Year
  Sex: Male
  Weight: 80 kg

DRUGS (3)
  1. ETOPOSIDE [Suspect]
     Active Substance: ETOPOSIDE
     Indication: Hodgkin^s disease stage IV
     Dosage: 200 MILLIGRAM/SQ. METER, 1 TOTAL
     Route: 042
     Dates: start: 20231227, end: 20231227
  2. CYCLOPHOSPHAMIDE [Suspect]
     Active Substance: CYCLOPHOSPHAMIDE
     Indication: Hodgkin^s disease stage IV
     Dosage: 1250 MILLIGRAM/SQ. METER, 1 TOTAL
     Route: 042
     Dates: start: 20231227, end: 20231227
  3. DOXORUBICIN [Suspect]
     Active Substance: DOXORUBICIN
     Indication: Hodgkin^s disease stage IV
     Dosage: 35 MILLIGRAM/SQ. METER,1 TOTAL
     Route: 042
     Dates: start: 20231227, end: 20231227

REACTIONS (1)
  - Acute coronary syndrome [Recovered/Resolved with Sequelae]

NARRATIVE: CASE EVENT DATE: 20231230
